FAERS Safety Report 9538639 (Version 2)
Quarter: 2014Q2

REPORT INFORMATION
  Report Type: Spontaneous
  Country: US (occurrence: None)
  Receive Date: 20130917
  Receipt Date: 20140401
  Transmission Date: 20141212
  Serious: Yes (Hospitalization)
  Sender: FDA-Public Use
  Company Number: 2013-US-000145

PATIENT
  Age: 47 Year
  Sex: Female

DRUGS (2)
  1. XYREM [Suspect]
     Indication: FIBROMYALGIA
     Route: 048
     Dates: start: 20120424, end: 201203
  2. ANTIDEPRESSANTS [Concomitant]

REACTIONS (8)
  - Fall [None]
  - Insomnia [None]
  - Phobia of driving [None]
  - Fatigue [None]
  - Fatigue [None]
  - Alcohol abuse [None]
  - Depression [None]
  - Off label use [None]
